FAERS Safety Report 4425299-7 (Version None)
Quarter: 2004Q3

REPORT INFORMATION
  Report Type: 
  Country: None (occurrence: None)
  Receive Date: 20040812
  Receipt Date: 20040812
  Transmission Date: 20050211
  Serious: Yes (Other)
  Sender: FDA-Public Use
  Company Number: None

PATIENT
  Age: 34 Year
  Sex: Female
  Weight: 127.0072 kg

DRUGS (3)
  1. PAROXITENE [Suspect]
     Indication: ANXIETY
     Dosage: 20 MG 7D
  2. PAROXITENE [Suspect]
     Indication: MOOD SWINGS
     Dosage: 20 MG 7D
  3. PAROXITENE [Suspect]
     Indication: STRESS SYMPTOMS
     Dosage: 20 MG 7D

REACTIONS (2)
  - ANXIETY [None]
  - CHEST PAIN [None]
